FAERS Safety Report 14582452 (Version 1)
Quarter: 2018Q1

REPORT INFORMATION
  Report Type: Spontaneous
  Country: US (occurrence: US)
  Receive Date: 20180228
  Receipt Date: 20180228
  Transmission Date: 20180509
  Serious: No
  Sender: FDA-Public Use
  Company Number: US-BAYER-2018-034828

PATIENT
  Age: 88 Year
  Sex: Female
  Weight: 49 kg

DRUGS (3)
  1. CHOLESTEROL [Concomitant]
     Active Substance: CHOLESTEROL
  2. MIRALAX [Suspect]
     Active Substance: POLYETHYLENE GLYCOL 3350
     Indication: GASTROINTESTINAL DISORDER
     Dosage: 1 DF, ABOUT 4 TIMES A WEEK
     Route: 048
     Dates: start: 20180217, end: 20180220
  3. MIRALAX [Suspect]
     Active Substance: POLYETHYLENE GLYCOL 3350
     Indication: GASTROINTESTINAL DISORDER
     Dosage: 1 DF, ABOUT 4 TIMES A WEEK
     Route: 048
     Dates: start: 2017

REACTIONS (5)
  - Inappropriate schedule of drug administration [Unknown]
  - Product odour abnormal [Unknown]
  - Circumstance or information capable of leading to medication error [Unknown]
  - Poor quality drug administered [Unknown]
  - Product prescribing issue [Unknown]

NARRATIVE: CASE EVENT DATE: 2017
